FAERS Safety Report 7325736-4 (Version None)
Quarter: 2011Q1

REPORT INFORMATION
  Report Type: 
  Country: None (occurrence: None)
  Receive Date: 20110302
  Receipt Date: 20110209
  Transmission Date: 20110831
  Serious: Yes (Hospitalization, Other)
  Sender: FDA-Public Use
  Company Number: GB-BAYER-2011-018685

PATIENT
  Age: 41 Year
  Sex: Male

DRUGS (5)
  1. CODEINE SULFATE [Concomitant]
  2. METFORMIN [Concomitant]
  3. SIMVASTATIN [Concomitant]
  4. ACETAMINOPHEN [Concomitant]
  5. NAPROXEN SODIUM [Suspect]
     Indication: OSTEOARTHRITIS
     Dosage: 500 MG, BID
     Route: 048
     Dates: end: 20110130

REACTIONS (1)
  - DUODENAL ULCER PERFORATION [None]
